FAERS Safety Report 7601608-2 (Version None)
Quarter: 2011Q3

REPORT INFORMATION
  Report Type: 
  Country: None (occurrence: None)
  Receive Date: 20110711
  Receipt Date: 20110701
  Transmission Date: 20111222
  Serious: Yes (Hospitalization)
  Sender: FDA-Public Use
  Company Number: PHHO2010BE14491

PATIENT
  Sex: Male
  Weight: 79 kg

DRUGS (15)
  1. TACROLIMUS [Suspect]
     Indication: LIVER TRANSPLANT
     Dosage: 1 MG, BID
     Route: 048
     Dates: start: 20100221, end: 20110526
  2. TRAZOLAN [Concomitant]
  3. CACIT D3 [Concomitant]
  4. LORAMET [Concomitant]
  5. EVEROLIMUS [Suspect]
     Indication: LIVER TRANSPLANT
     Dosage: 2 MG, BID
     Route: 048
     Dates: start: 20100324
  6. MEDROL [Suspect]
     Indication: LIVER TRANSPLANT
     Dosage: 4 MG, UNK
     Dates: start: 20100901
  7. ZOVIRAX [Suspect]
     Indication: EPSTEIN-BARR VIRUS INFECTION
     Dosage: UNK
     Dates: start: 20100901
  8. BACTRIM DS [Concomitant]
  9. PANTOPRAZOLE SODIUM [Concomitant]
  10. LASIX [Concomitant]
  11. PERINDOPRIL ERBUMINE [Concomitant]
  12. SIPRALEXA [Concomitant]
  13. ENOXAPARIN SODIUM [Concomitant]
  14. ALLOPURINOL [Concomitant]
  15. NOVOMIX [Concomitant]

REACTIONS (7)
  - PLEURAL EFFUSION [None]
  - TUMOUR LYSIS SYNDROME [None]
  - URINARY TRACT INFECTION [None]
  - DYSPNOEA [None]
  - B-CELL LYMPHOMA [None]
  - NEUTROPENIA [None]
  - NEUTROPENIC SEPSIS [None]
